FAERS Safety Report 10137389 (Version 1)
Quarter: 2014Q2

REPORT INFORMATION
  Report Type: Spontaneous
  Country: US (occurrence: None)
  Receive Date: 20140425
  Receipt Date: 20140425
  Transmission Date: 20141212
  Serious: Yes (Death)
  Sender: FDA-Public Use
  Company Number: US-MDCO-14-00101

PATIENT
  Age: 75 Year
  Sex: Female

DRUGS (1)
  1. ANGIOMAX [Suspect]
     Indication: PERIPHERAL ARTERY STENT INSERTION
     Dates: start: 20140411

REACTIONS (4)
  - Blood pressure decreased [None]
  - Respiratory rate decreased [None]
  - Retroperitoneal haemorrhage [None]
  - Device failure [None]
